FAERS Safety Report 12252839 (Version 2)
Quarter: 2016Q2

REPORT INFORMATION
  Report Type: Spontaneous
  Country: IT (occurrence: IT)
  Receive Date: 20160411
  Receipt Date: 20160427
  Transmission Date: 20160815
  Serious: Yes (Other)
  Sender: FDA-Public Use
  Company Number: IT-ABBVIE-16P-083-1601808-00

PATIENT
  Age: 51 Year
  Sex: Male

DRUGS (2)
  1. KLACID [Suspect]
     Active Substance: CLARITHROMYCIN
     Indication: RESPIRATORY TRACT INFECTION
     Dosage: DIALY DOSE: 1 GRAM DAILY
     Route: 048
     Dates: start: 20151031, end: 20151031
  2. AUGMENTIN [Suspect]
     Active Substance: AMOXICILLIN\CLAVULANATE POTASSIUM
     Indication: RESPIRATORY TRACT INFECTION
     Dosage: FORM STRENGTH:875 MG/125 MG, DAILY DOSE 2 G DAILY
     Route: 048
     Dates: start: 20151031, end: 20151031

REACTIONS (1)
  - Angioedema [Recovering/Resolving]

NARRATIVE: CASE EVENT DATE: 20151101
